FAERS Safety Report 7127263-6 (Version None)
Quarter: 2010Q4

REPORT INFORMATION
  Report Type: 
  Country: None (occurrence: None)
  Receive Date: 20101129
  Receipt Date: 20100503
  Transmission Date: 20110411
  Serious: No
  Sender: FDA-Public Use
  Company Number: US-PFIZER INC-2010056447

PATIENT
  Sex: Male

DRUGS (3)
  1. VIAGRA [Suspect]
     Indication: ERECTILE DYSFUNCTION
     Dosage: 100 MG, UNK
     Dates: start: 19980101
  2. CIALIS [Concomitant]
     Dosage: UNK
  3. TAMSULOSIN HYDROCHLORIDE [Concomitant]
     Indication: BENIGN PROSTATIC HYPERPLASIA
     Dosage: 20 MG, DAILY

REACTIONS (4)
  - DRUG INEFFECTIVE [None]
  - ERYTHEMA [None]
  - HEADACHE [None]
  - NASAL CONGESTION [None]
